FAERS Safety Report 7199152-2 (Version None)
Quarter: 2010Q4

REPORT INFORMATION
  Report Type: 
  Country: None (occurrence: None)
  Receive Date: 20101228
  Receipt Date: 20101215
  Transmission Date: 20110411
  Serious: Yes (Death)
  Sender: FDA-Public Use
  Company Number: US-CELGENEUS-163-21880-10122194

PATIENT
  Sex: Male

DRUGS (14)
  1. REVLIMID [Suspect]
     Indication: MULTIPLE MYELOMA
     Route: 048
     Dates: start: 20070801, end: 20100720
  2. PRAVACHOL [Concomitant]
     Route: 065
  3. PROTONIX [Concomitant]
     Route: 065
  4. PAXIL [Concomitant]
     Route: 065
  5. DEXAMETHASONE [Concomitant]
     Route: 065
  6. COUMADIN [Concomitant]
     Route: 065
  7. CARDIZEM CD [Concomitant]
     Dosage: 120 MG/24
     Route: 065
  8. FENTANYL [Concomitant]
     Route: 065
  9. ASCORBIC ACID [Concomitant]
     Route: 065
  10. VITAMIN B-12 [Concomitant]
     Route: 065
  11. VITAMIN D [Concomitant]
     Dosage: 1000 UNIT
     Route: 065
  12. CALCIUM [Concomitant]
     Route: 065
  13. MULTI-VITAMIN [Concomitant]
     Route: 065
  14. COLACE [Concomitant]
     Route: 065

REACTIONS (1)
  - DEATH [None]
